FAERS Safety Report 8048422 (Version 2)
Quarter: 2012Q4

REPORT INFORMATION
  Report Type: 
  Country: JP (occurrence: KR)
  Receive Date: 20110721
  Receipt Date: 20121101
  Transmission Date: 20130627
  Serious: Yes (Hospitalization)
  Sender: FDA-Public Use
  Company Number: KR-AMGEN-KORSP2011035739

PATIENT
  Age: 63 Year
  Sex: Female

DRUGS (1)
  1. REGPARA [Suspect]
     Indication: HYPERPARATHYROIDISM
     Dosage: UNK
     Route: 048

REACTIONS (1)
  - Peritonitis [Recovering/Resolving]
